FAERS Safety Report 5084450-9 (Version None)
Quarter: 2006Q3

REPORT INFORMATION
  Report Type: 
  Country: None (occurrence: None)
  Receive Date: 20060821
  Receipt Date: 20060814
  Transmission Date: 20061208
  Serious: Yes (Hospitalization)
  Sender: FDA-Public Use
  Company Number: SE-GLAXOSMITHKLINE-B0434753A

PATIENT
  Sex: Female

DRUGS (5)
  1. ZYBAN [Suspect]
     Indication: DRUG USE FOR UNKNOWN INDICATION
     Route: 048
  2. BEZALIP [Suspect]
     Route: 048
  3. SYMBICORT [Concomitant]
     Route: 055
  4. IMPUGAN [Concomitant]
     Dosage: 40MG UNKNOWN
     Route: 065
  5. ATROVENT [Concomitant]
     Dosage: 40MG UNKNOWN
     Route: 065

REACTIONS (4)
  - BLOOD CREATININE INCREASED [None]
  - C-REACTIVE PROTEIN INCREASED [None]
  - PYREXIA [None]
  - TRANSAMINASES INCREASED [None]
